FAERS Safety Report 5898025-2 (Version None)
Quarter: 2008Q3

REPORT INFORMATION
  Report Type: 
  Country: None (occurrence: None)
  Receive Date: 20080917
  Receipt Date: 20080411
  Transmission Date: 20090109
  Serious: Yes (Other)
  Sender: FDA-Public Use
  Company Number: PHEH2008US03748

PATIENT
  Sex: Female

DRUGS (1)
  1. FEMARA [Suspect]

REACTIONS (7)
  - BLOOD CHOLESTEROL INCREASED [None]
  - BLOOD PRESSURE INCREASED [None]
  - BONE DISORDER [None]
  - DEPRESSION [None]
  - HEADACHE [None]
  - HOT FLUSH [None]
  - NAUSEA [None]
